FAERS Safety Report 13563346 (Version 2)
Quarter: 2017Q2

REPORT INFORMATION
  Report Type: Spontaneous
  Country: SI (occurrence: SI)
  Receive Date: 20170519
  Receipt Date: 20170519
  Transmission Date: 20170830
  Serious: Yes (Hospitalization, Other)
  Sender: FDA-Public Use
  Company Number: SI-BAYER-2017-087810

PATIENT
  Age: 61 Year
  Sex: Male

DRUGS (8)
  1. CONCOR [Concomitant]
     Active Substance: BISOPROLOL FUMARATE
     Dosage: UNK
     Dates: start: 2004
  2. SIRDALUD [Concomitant]
     Active Substance: TIZANIDINE
     Dosage: UNK
  3. PROZAC [Concomitant]
     Active Substance: FLUOXETINE HYDROCHLORIDE
     Dosage: UNK
  4. BETAFERON [Suspect]
     Active Substance: INTERFERON BETA-1B
     Indication: MULTIPLE SCLEROSIS
     Dosage: UNK
     Dates: start: 19970317
  5. LIORESAL [Concomitant]
     Active Substance: BACLOFEN
     Dosage: UNK
  6. FAMPYRA [Concomitant]
     Active Substance: DALFAMPRIDINE
  7. LADIOMIL [Concomitant]
     Active Substance: MAPROTILINE HYDROCHLORIDE
     Dosage: UNK
  8. FLUOXETINE [Concomitant]
     Active Substance: FLUOXETINE HYDROCHLORIDE

REACTIONS (24)
  - Multiple sclerosis relapse [Recovering/Resolving]
  - Suffocation feeling [Recovering/Resolving]
  - Balance disorder [None]
  - Erectile dysfunction [None]
  - Dysphagia [None]
  - Heart rate increased [Recovering/Resolving]
  - Balance disorder [None]
  - Palpitations [None]
  - Fall [None]
  - Muscular weakness [None]
  - Apathy [Recovering/Resolving]
  - Joint instability [None]
  - Gait disturbance [None]
  - Drug ineffective [None]
  - Depression [None]
  - Dysphagia [None]
  - Influenza like illness [Recovering/Resolving]
  - Decreased interest [Recovering/Resolving]
  - Chest discomfort [None]
  - Visual impairment [Recovering/Resolving]
  - Hemiparesis [Recovering/Resolving]
  - Dyspnoea [Recovering/Resolving]
  - Speech disorder [None]
  - Dysphagia [None]

NARRATIVE: CASE EVENT DATE: 1997
